FAERS Safety Report 20391846 (Version 4)
Quarter: 2022Q1

REPORT INFORMATION
  Report Type: Spontaneous
  Country: US (occurrence: US)
  Receive Date: 20220128
  Receipt Date: 20220329
  Transmission Date: 20220423
  Serious: Yes (Hospitalization)
  Sender: FDA-Public Use
  Company Number: US-PFIZER INC-202101504358

PATIENT
  Age: 76 Year
  Sex: Female

DRUGS (1)
  1. IBRANCE [Suspect]
     Active Substance: PALBOCICLIB
     Dosage: 100 MG

REACTIONS (6)
  - Localised infection [Unknown]
  - Urinary tract infection [Unknown]
  - Hypotension [Unknown]
  - Dehydration [Unknown]
  - Hip surgery [Unknown]
  - Speech disorder [Unknown]
